FAERS Safety Report 5804395-3 (Version None)
Quarter: 2008Q3

REPORT INFORMATION
  Report Type: 
  Country: None (occurrence: None)
  Receive Date: 20080709
  Receipt Date: 20080411
  Transmission Date: 20090109
  Serious: No
  Sender: FDA-Public Use
  Company Number: US-BAYER-200820212NA

PATIENT
  Age: 20 Year
  Sex: Female
  Weight: 75 kg

DRUGS (2)
  1. MIRENA [Suspect]
     Indication: CONTRACEPTION
     Route: 015
  2. UNCODABLE DRUG [Concomitant]
     Indication: WEIGHT DECREASED
     Dates: start: 20080101

REACTIONS (1)
  - MENSTRUATION DELAYED [None]
